FAERS Safety Report 11144497 (Version 2)
Quarter: 2015Q2

REPORT INFORMATION
  Report Type: Spontaneous
  Country: JP (occurrence: JP)
  Receive Date: 20150528
  Receipt Date: 20150618
  Transmission Date: 20150821
  Serious: Yes (Other)
  Sender: FDA-Public Use
  Company Number: JP-MYLANLABS-2015M1017427

PATIENT

DRUGS (2)
  1. SODIUM THIOSULFATE [Suspect]
     Active Substance: SODIUM THIOSULFATE
     Dosage: 8 G/ME2 FOR 8 HOURS
     Route: 042
  2. CISPLATIN. [Suspect]
     Active Substance: CISPLATIN
     Indication: ADENOCARCINOMA
     Dosage: 40MG/ME2 FOR 5 HOURS ONCE A WEEK FOR 9 COURSES
     Route: 013

REACTIONS (2)
  - Mucosal inflammation [Unknown]
  - Dermatitis [Unknown]
